FAERS Safety Report 4283324-0 (Version None)
Quarter: 2004Q1

REPORT INFORMATION
  Report Type: 
  Country: None (occurrence: None)
  Receive Date: 20040129
  Receipt Date: 20040115
  Transmission Date: 20041129
  Serious: Yes (Life-Threatening, Hospitalization, Disabling, Congenital Anomaly, Other)
  Sender: FDA-Public Use
  Company Number: A125155

PATIENT
  Age: 3 Year
  Sex: Male
  Weight: 15 kg

DRUGS (4)
  1. ZITHROMAX [Suspect]
     Indication: UPPER RESPIRATORY TRACT INFECTION
     Dosage: (DAILY), ORAL
     Route: 048
     Dates: start: 20010501, end: 20011017
  2. ERYTHROMYCIN [Suspect]
  3. CHLORAL HYDRATE (CHLORAL HYDRATE) [Suspect]
     Indication: SLEEP DISORDER
     Dosage: 500 MG (PRN), ORAL
     Route: 048
     Dates: start: 20010926, end: 20011013
  4. CHLORAMPHENICOL [Concomitant]

REACTIONS (34)
  - ARTHRALGIA [None]
  - COMPUTERISED TOMOGRAM ABNORMAL [None]
  - CONJUNCTIVITIS [None]
  - CORNEAL NEOVASCULARISATION [None]
  - COUGH [None]
  - DIFFICULTY IN WALKING [None]
  - ENTROPION [None]
  - EYE DISCHARGE [None]
  - EYE INFLAMMATION [None]
  - EYE INJURY [None]
  - EYE IRRITATION [None]
  - EYE PAIN [None]
  - EYE REDNESS [None]
  - EYE SWELLING [None]
  - EYELID DISORDER [None]
  - GASTRITIS HAEMORRHAGIC [None]
  - GROWING PAINS [None]
  - HAEMODYNAMIC INSTABILITY [None]
  - HIATUS HERNIA [None]
  - KERATITIS [None]
  - KERATOPATHY [None]
  - LACRIMATION INCREASED [None]
  - LAGOPHTHALMOS [None]
  - LUNG DISORDER [None]
  - OESOPHAGITIS [None]
  - OTITIS EXTERNA [None]
  - PAIN IN EXTREMITY [None]
  - PHOTOPHOBIA [None]
  - SINUS DISORDER [None]
  - SLEEP DISORDER [None]
  - STEVENS-JOHNSON SYNDROME [None]
  - VISION BLURRED [None]
  - VISUAL ACUITY REDUCED [None]
  - WHEEZING [None]
